FAERS Safety Report 20613475 (Version 1)
Quarter: 2022Q1

REPORT INFORMATION
  Report Type: Spontaneous
  Country: US (occurrence: US)
  Receive Date: 20220319
  Receipt Date: 20220319
  Transmission Date: 20220423
  Serious: Yes (Life-Threatening, Hospitalization, Other)
  Sender: FDA-Public Use
  Company Number: US-MLMSERVICE-20220307-3410954-5

PATIENT
  Age: 31 Year
  Sex: Male

DRUGS (1)
  1. OXALIPLATIN [Suspect]
     Active Substance: OXALIPLATIN
     Indication: Colorectal cancer metastatic
     Dosage: FIFTH DESENSITIZATION (4-STEP PROTOCOL),

REACTIONS (4)
  - Immune thrombocytopenia [Recovered/Resolved]
  - Microangiopathy [Unknown]
  - Disseminated intravascular coagulation [Recovered/Resolved]
  - Back pain [Recovering/Resolving]
